FAERS Safety Report 8876711 (Version 1)
Quarter: 2012Q4

REPORT INFORMATION
  Report Type: 
  Country: CH (occurrence: CH)
  Receive Date: 20121029
  Receipt Date: 20121029
  Transmission Date: 20130627
  Serious: Yes (Hospitalization, Other)
  Sender: FDA-Public Use
  Company Number: CH-PFIZER INC-2012268077

PATIENT
  Age: 68 Year
  Sex: Female

DRUGS (2)
  1. MORPHINE SULFATE [Suspect]
     Indication: CHRONIC PAIN
     Dosage: 100 mg, 4x/day
     Route: 048
     Dates: start: 201207, end: 20120722
  2. SAROTEN [Suspect]
     Dosage: 50 mg, UNK
     Route: 048
     Dates: start: 201207, end: 20120722

REACTIONS (3)
  - Delirium [Recovering/Resolving]
  - Psychotic disorder [Recovering/Resolving]
  - Aggression [Recovering/Resolving]
